FAERS Safety Report 9241160 (Version 5)
Quarter: 2014Q2

REPORT INFORMATION
  Report Type: Report from Study
  Country: KR (occurrence: KR)
  Receive Date: 20130419
  Receipt Date: 20140613
  Transmission Date: 20141212
  Serious: Yes (Hospitalization)
  Sender: FDA-Public Use
  Company Number: PHHO2013KR005030

PATIENT
  Age: 58 Year
  Sex: Female
  Weight: 53 kg

DRUGS (3)
  1. ASPIRIN [Concomitant]
     Indication: HYPERLIPIDAEMIA
     Dosage: 75 MG, QD
     Dates: start: 201201
  2. ATORVASTATIN [Suspect]
     Indication: HYPERLIPIDAEMIA
     Dosage: 10 MG, QD
     Dates: start: 201201
  3. VALSARTAN [Suspect]
     Indication: HYPERTENSION
     Dosage: 80 MG, QD
     Dates: start: 201201, end: 20130311

REACTIONS (1)
  - Pneumonia [Recovered/Resolved]
